FAERS Safety Report 25468572 (Version 1)
Quarter: 2025Q2

REPORT INFORMATION
  Report Type: Spontaneous
  Country: US (occurrence: US)
  Receive Date: 20250623
  Receipt Date: 20250623
  Transmission Date: 20250717
  Serious: No
  Sender: SANOFI AVENTIS
  Company Number: US-SA-2025SA174959

PATIENT
  Sex: Female

DRUGS (1)
  1. QFITLIA [Suspect]
     Active Substance: FITUSIRAN
     Indication: Factor VII deficiency

REACTIONS (1)
  - Off label use [Unknown]
